FAERS Safety Report 5191300-9 (Version None)
Quarter: 2006Q4

REPORT INFORMATION
  Report Type: 
  Country: None (occurrence: None)
  Receive Date: 20061219
  Receipt Date: 20061219
  Transmission Date: 20070319
  Serious: Yes (Death, Life-Threatening, Hospitalization, Other)
  Sender: FDA-Public Use
  Company Number: None

PATIENT
  Sex: Female
  Weight: 61.2356 kg

DRUGS (1)
  1. CYPHER SIROLIMUS-ELUTING CORONARY STENT [Suspect]
     Indication: ARTERIAL OCCLUSIVE DISEASE
     Dates: start: 20030512, end: 20040308

REACTIONS (4)
  - OXYGEN SATURATION DECREASED [None]
  - RESPIRATORY DISORDER [None]
  - RESPIRATORY TRACT CONGESTION [None]
  - THROMBOTIC STROKE [None]
